FAERS Safety Report 23258953 (Version 1)
Quarter: 2023Q4

REPORT INFORMATION
  Report Type: Spontaneous
  Country: None (occurrence: US)
  Receive Date: 20231204
  Receipt Date: 20231204
  Transmission Date: 20240110
  Serious: Yes (Hospitalization, Other)
  Sender: FDA-Public Use
  Company Number: US-Ascend Therapeutics US, LLC-2148975

PATIENT
  Age: 32 Year
  Sex: Female

DRUGS (2)
  1. ANDROGEL 1% [Suspect]
     Active Substance: TESTOSTERONE
     Indication: Gender dysphoria
     Route: 065
  2. TESTOSTERONE [Suspect]
     Active Substance: TESTOSTERONE
     Route: 065

REACTIONS (2)
  - Idiopathic intracranial hypertension [Unknown]
  - Product use issue [Unknown]
